FAERS Safety Report 23405298 (Version 1)
Quarter: 2024Q1

REPORT INFORMATION
  Report Type: Spontaneous
  Country: US (occurrence: US)
  Receive Date: 20240116
  Receipt Date: 20240116
  Transmission Date: 20240410
  Serious: Yes (Death, Life-Threatening, Hospitalization)
  Sender: FDA-Public Use
  Company Number: US-TEVA-VS-3142853

PATIENT
  Age: 74 Year

DRUGS (1)
  1. AMIODARONE [Suspect]
     Active Substance: AMIODARONE
     Indication: Coronary artery disease
     Dosage: HAD BEEN RECEIVING FOR MONTHS
     Route: 065

REACTIONS (3)
  - Hyperthyroidism [Fatal]
  - Cardiogenic shock [Fatal]
  - Thyrotoxic crisis [Fatal]
